FAERS Safety Report 8380611-1 (Version None)
Quarter: 2012Q2

REPORT INFORMATION
  Report Type: 
  Country: None (occurrence: None)
  Receive Date: 20120523
  Receipt Date: 20120510
  Transmission Date: 20120825
  Serious: Yes (Death, Other)
  Sender: FDA-Public Use
  Company Number: US-ACTELION-A-CH2012-65839

PATIENT
  Age: 53 Year
  Sex: Male

DRUGS (1)
  1. TRACLEER [Suspect]
     Indication: PULMONARY HYPERTENSION
     Dosage: UNK
     Route: 048

REACTIONS (4)
  - DEATH [None]
  - ATRIAL FIBRILLATION [None]
  - DRUG INEFFECTIVE FOR UNAPPROVED INDICATION [None]
  - RIGHT VENTRICULAR FAILURE [None]
